FAERS Safety Report 6229481-8 (Version None)
Quarter: 2009Q2

REPORT INFORMATION
  Report Type: 
  Country: None (occurrence: None)
  Receive Date: 20090615
  Receipt Date: 20090608
  Transmission Date: 20091009
  Serious: Yes (Death)
  Sender: FDA-Public Use
  Company Number: A0770290A

PATIENT
  Sex: Male
  Weight: 5 kg

DRUGS (4)
  1. DIGOXIN [Suspect]
     Indication: CARDIAC DISORDER
     Dosage: .4ML TWICE PER DAY
     Dates: start: 20090216, end: 20090218
  2. CAPTOPRIL [Concomitant]
     Dosage: 1TAB THREE TIMES PER DAY
     Dates: start: 20080501
  3. FUROSEMIDE [Concomitant]
     Dosage: 1TAB THREE TIMES PER DAY
     Dates: start: 20080501
  4. SPIRONOLACTONE [Concomitant]
     Dosage: 1TAB THREE TIMES PER DAY
     Dates: start: 20080501

REACTIONS (5)
  - DEATH [None]
  - GENERALISED OEDEMA [None]
  - PRODUCT QUALITY ISSUE [None]
  - RASH [None]
  - RASH GENERALISED [None]
